FAERS Safety Report 14137986 (Version 4)
Quarter: 2018Q1

REPORT INFORMATION
  Report Type: Report from Study
  Country: JP (occurrence: JP)
  Receive Date: 20171027
  Receipt Date: 20180130
  Transmission Date: 20180508
  Serious: Yes (Hospitalization)
  Sender: FDA-Public Use
  Company Number: JP-JNJFOC-20171007662

PATIENT
  Age: 79 Year
  Sex: Male
  Weight: 53.9 kg

DRUGS (9)
  1. NIFEDIPINE. [Concomitant]
     Active Substance: NIFEDIPINE
     Indication: HYPERTENSION
     Route: 048
     Dates: start: 2010
  2. PLACEBO [Suspect]
     Active Substance: UNSPECIFIED INGREDIENT
     Indication: METASTASES TO BONE
     Route: 042
     Dates: start: 20160519, end: 20161013
  3. MAINTATE [Concomitant]
     Active Substance: BISOPROLOL FUMARATE
     Indication: HYPERTENSION
     Route: 048
     Dates: start: 2010
  4. PREDNISOLONE. [Suspect]
     Active Substance: PREDNISOLONE
     Indication: HORMONE-REFRACTORY PROSTATE CANCER
     Route: 048
     Dates: start: 20160519, end: 20171114
  5. ABIRATERONE ACETATE. [Suspect]
     Active Substance: ABIRATERONE ACETATE
     Indication: HORMONE-REFRACTORY PROSTATE CANCER
     Route: 048
     Dates: start: 20160519, end: 20171114
  6. PLACEBO [Suspect]
     Active Substance: UNSPECIFIED INGREDIENT
     Indication: HORMONE-REFRACTORY PROSTATE CANCER
     Route: 042
     Dates: start: 20160519, end: 20161013
  7. PREDNISOLONE. [Suspect]
     Active Substance: PREDNISOLONE
     Indication: METASTASES TO BONE
     Route: 048
     Dates: start: 20160519, end: 20171114
  8. PRAVASTATIN SODIUM. [Concomitant]
     Active Substance: PRAVASTATIN SODIUM
     Indication: HYPERTENSION
     Route: 048
     Dates: start: 2010
  9. ABIRATERONE ACETATE. [Suspect]
     Active Substance: ABIRATERONE ACETATE
     Indication: METASTASES TO BONE
     Route: 048
     Dates: start: 20160519, end: 20171114

REACTIONS (1)
  - Aortic valve stenosis [Recovered/Resolved]

NARRATIVE: CASE EVENT DATE: 20171003
